FAERS Safety Report 9226891 (Version 2)
Quarter: 2013Q2

REPORT INFORMATION
  Report Type: Spontaneous
  Country: US (occurrence: None)
  Receive Date: 20130410
  Receipt Date: 20130606
  Transmission Date: 20140414
  Serious: Yes (Other)
  Sender: FDA-Public Use
  Company Number: 1660281

PATIENT
  Sex: 0

DRUGS (4)
  1. CALCIUM FOLINATE [Suspect]
     Indication: PANCREATIC CARCINOMA
  2. OXALIPLATIN [Suspect]
     Indication: PANCREATIC CARCINOMA
  3. IRINOTECAN HYDROCHLORIDE [Suspect]
     Indication: PANCREATIC CARCINOMA
  4. 5-FU [Suspect]
     Indication: PANCREATIC CARCINOMA

REACTIONS (1)
  - Anaemia [None]
